FAERS Safety Report 19468911 (Version 1)
Quarter: 2021Q2

REPORT INFORMATION
  Report Type: Spontaneous
  Country: US (occurrence: US)
  Receive Date: 20210628
  Receipt Date: 20210628
  Transmission Date: 20210717
  Serious: Yes (Other)
  Sender: FDA-Public Use
  Company Number: US-ASTRAZENECA-2021A538855

PATIENT
  Age: 87 Year
  Sex: Male
  Weight: 63 kg

DRUGS (15)
  1. NUPLAZID [Suspect]
     Active Substance: PIMAVANSERIN TARTRATE
     Indication: PARKINSON^S DISEASE
     Route: 048
     Dates: start: 20210501, end: 20210513
  2. COREG [Concomitant]
     Active Substance: CARVEDILOL
  3. SCOPOLAMINE [Concomitant]
     Active Substance: SCOPOLAMINE
  4. LANTUS [Concomitant]
     Active Substance: INSULIN GLARGINE
  5. SEROQUEL [Suspect]
     Active Substance: QUETIAPINE FUMARATE
     Indication: TYPE 2 DIABETES MELLITUS
     Route: 048
     Dates: start: 20210511
  6. PLAVIX [Concomitant]
     Active Substance: CLOPIDOGREL BISULFATE
  7. PRAVASTATIN. [Concomitant]
     Active Substance: PRAVASTATIN
  8. CILOSTAZOL. [Concomitant]
     Active Substance: CILOSTAZOL
  9. HUMALOG [Concomitant]
     Active Substance: INSULIN LISPRO
  10. SEROQUEL [Suspect]
     Active Substance: QUETIAPINE FUMARATE
     Indication: TYPE 2 DIABETES MELLITUS
     Route: 048
     Dates: start: 20210512
  11. TRADJENTA [Concomitant]
     Active Substance: LINAGLIPTIN
  12. ASPIRIN. [Concomitant]
     Active Substance: ASPIRIN
  13. CARBIDOPA/LEVODOPA [Concomitant]
     Active Substance: CARBIDOPA\LEVODOPA
  14. LISINOPRIL. [Concomitant]
     Active Substance: LISINOPRIL
  15. LORATADINE. [Concomitant]
     Active Substance: LORATADINE

REACTIONS (11)
  - Speech disorder [Unknown]
  - Insomnia [Unknown]
  - Somnolence [Unknown]
  - Asthenia [Unknown]
  - Drug ineffective [Unknown]
  - Abnormal behaviour [Unknown]
  - Hallucination [Unknown]
  - Dementia [Unknown]
  - Delusion [Unknown]
  - Confusional state [Unknown]
  - Gait disturbance [Unknown]
